FAERS Safety Report 12081678 (Version 1)
Quarter: 2016Q1

REPORT INFORMATION
  Report Type: Spontaneous
  Country: US (occurrence: US)
  Receive Date: 20160216
  Receipt Date: 20160216
  Transmission Date: 20160526
  Serious: No
  Sender: FDA-Public Use
  Company Number: US-PERRIGO-15US003990

PATIENT
  Age: 41 Year
  Sex: Female
  Weight: 53.61 kg

DRUGS (3)
  1. SYNTHROID [Concomitant]
     Active Substance: LEVOTHYROXINE SODIUM
     Indication: HYPOTHYROIDISM
     Dosage: UNK
     Route: 065
     Dates: start: 1994
  2. IBUPROFEN. [Suspect]
     Active Substance: IBUPROFEN
     Indication: OROPHARYNGEAL PAIN
     Dosage: 200 MG OR LESS, EVERY 4 TO 6 HOURS
     Route: 048
     Dates: start: 20150223, end: 20150225
  3. ACETAMINOPHEN GRAPE DYE FREE 32 MG/ML 397 [Suspect]
     Active Substance: ACETAMINOPHEN
     Indication: OROPHARYNGEAL PAIN
     Dosage: 320 MG OR LESS, EVERY 4 TO 6 HOURS
     Route: 048
     Dates: start: 20150224, end: 20150225

REACTIONS (4)
  - No adverse event [Recovered/Resolved]
  - Drug administered to patient of inappropriate age [None]
  - Drug administered to patient of inappropriate age [Recovered/Resolved]
  - Expired product administered [Recovered/Resolved]

NARRATIVE: CASE EVENT DATE: 20150223
